FAERS Safety Report 25924232 (Version 1)
Quarter: 2025Q4

REPORT INFORMATION
  Report Type: Spontaneous
  Country: US (occurrence: US)
  Receive Date: 20251015
  Receipt Date: 20251015
  Transmission Date: 20260117
  Serious: No
  Sender: MISSION PHARMACAL COMPANY
  Company Number: US-Mission Pharmacal Company-2186612

PATIENT
  Age: 46 Year
  Sex: Male

DRUGS (1)
  1. THIOLA EC [Suspect]
     Active Substance: TIOPRONIN
     Indication: Cystinuria
     Dates: start: 20190622

REACTIONS (3)
  - Drug ineffective [Unknown]
  - Vitamin D deficiency [Unknown]
  - Vitamin B complex deficiency [Recovering/Resolving]
